FAERS Safety Report 11403960 (Version 25)
Quarter: 2018Q1

REPORT INFORMATION
  Report Type: Report from Study
  Country: CA (occurrence: CA)
  Receive Date: 20150821
  Receipt Date: 20180223
  Transmission Date: 20180508
  Serious: Yes (Other)
  Sender: FDA-Public Use
  Company Number: CA-SA-2015SA100007

PATIENT
  Age: 46 Year
  Sex: Female

DRUGS (14)
  1. LEMTRADA [Suspect]
     Active Substance: ALEMTUZUMAB
     Indication: RELAPSING-REMITTING MULTIPLE SCLEROSIS
     Route: 041
     Dates: start: 20150706, end: 20150709
  2. FLOVENT [Concomitant]
     Active Substance: FLUTICASONE PROPIONATE
  3. SALBUTAMOL [Concomitant]
     Active Substance: ALBUTEROL
  4. LEMTRADA [Suspect]
     Active Substance: ALEMTUZUMAB
     Indication: RELAPSING-REMITTING MULTIPLE SCLEROSIS
     Route: 041
     Dates: start: 20150706, end: 20150709
  5. AMITRIPTYLINE [Concomitant]
     Active Substance: AMITRIPTYLINE
     Dosage: AT BEDTIME
  6. CITALOPRAM [Concomitant]
     Active Substance: CITALOPRAM HYDROBROMIDE
     Dosage: 20 MG; 10 MG
  7. LEMTRADA [Suspect]
     Active Substance: ALEMTUZUMAB
     Indication: RELAPSING-REMITTING MULTIPLE SCLEROSIS
     Route: 041
     Dates: start: 20150713, end: 20150713
  8. PANTOPRAZOLE [Concomitant]
     Active Substance: PANTOPRAZOLE
     Dosage: 30 MIN BEFORE BREAKFAST
  9. D-GEL [Concomitant]
  10. ALPRAZOLAM. [Concomitant]
     Active Substance: ALPRAZOLAM
  11. NABILONE [Concomitant]
     Active Substance: NABILONE
     Dosage: 1MG 2/DAY?0.5 MG 1/DAY
  12. LEMTRADA [Suspect]
     Active Substance: ALEMTUZUMAB
     Indication: RELAPSING-REMITTING MULTIPLE SCLEROSIS
     Route: 041
     Dates: start: 20150713, end: 20150713
  13. HYDROMORPHONE [Concomitant]
     Active Substance: HYDROMORPHONE
     Dosage: AT BEDTIME
  14. BACLOFEN. [Concomitant]
     Active Substance: BACLOFEN
     Dosage: 1-2 ORAL
     Route: 048

REACTIONS (26)
  - Hypoaesthesia [Not Recovered/Not Resolved]
  - Bone pain [Unknown]
  - Optic neuritis [Recovering/Resolving]
  - Headache [Not Recovered/Not Resolved]
  - Erythema [Recovered/Resolved]
  - Lymphocyte count decreased [Not Recovered/Not Resolved]
  - Fungal infection [Unknown]
  - Gastric ulcer [Recovered/Resolved]
  - Fatigue [Not Recovered/Not Resolved]
  - Acne [Recovered/Resolved]
  - Eye pain [Not Recovered/Not Resolved]
  - Infection [Recovered/Resolved]
  - Nuclear magnetic resonance imaging abnormal [Not Recovered/Not Resolved]
  - Infusion site extravasation [Recovered/Resolved]
  - Abdominal pain upper [Recovered/Resolved]
  - Multiple sclerosis relapse [Not Recovered/Not Resolved]
  - Burning sensation [Recovered/Resolved]
  - Loss of personal independence in daily activities [Not Recovered/Not Resolved]
  - Haematuria [Recovered/Resolved]
  - Pruritus [Recovered/Resolved]
  - Purulent discharge [Recovered/Resolved]
  - Arthralgia [Unknown]
  - Eosinophil count decreased [Not Recovered/Not Resolved]
  - Pruritus [Recovered/Resolved]
  - Nausea [Recovered/Resolved]
  - Lymphopenia [Not Recovered/Not Resolved]

NARRATIVE: CASE EVENT DATE: 2015
